FAERS Safety Report 5967767-2 (Version None)
Quarter: 2008Q4

REPORT INFORMATION
  Report Type: 
  Country: None (occurrence: None)
  Receive Date: 20081126
  Receipt Date: 20081124
  Transmission Date: 20090506
  Serious: Yes (Other)
  Sender: FDA-Public Use
  Company Number: GB-JNJFOC-20081105620

PATIENT
  Sex: Female

DRUGS (2)
  1. NORGESTIMATE AND ETHINYL ESTRADIOL [Suspect]
     Indication: CONTRACEPTION
     Route: 048
  2. ZOVIRAX [Interacting]
     Indication: ORAL HERPES
     Route: 065

REACTIONS (2)
  - DRUG INTERACTION [None]
  - DYSFUNCTIONAL UTERINE BLEEDING [None]
